FAERS Safety Report 22834166 (Version 2)
Quarter: 2024Q2

REPORT INFORMATION
  Report Type: Spontaneous
  Country: US (occurrence: US)
  Receive Date: 20230817
  Receipt Date: 20240507
  Transmission Date: 20240716
  Serious: No
  Sender: FDA-Public Use
  Company Number: US-PFIZER INC-PV202300140186

PATIENT
  Age: 63 Year
  Sex: Male

DRUGS (1)
  1. XELJANZ XR [Suspect]
     Active Substance: TOFACITINIB CITRATE
     Dosage: 11 MG
     Dates: end: 202401

REACTIONS (9)
  - Poor quality sleep [Unknown]
  - Peripheral swelling [Unknown]
  - Joint swelling [Unknown]
  - Spinal pain [Unknown]
  - Alopecia [Unknown]
  - Diarrhoea [Unknown]
  - Dyspepsia [Unknown]
  - Abdominal distension [Unknown]
  - Musculoskeletal pain [Unknown]
